FAERS Safety Report 8465222-1 (Version None)
Quarter: 2012Q2

REPORT INFORMATION
  Report Type: 
  Country: None (occurrence: None)
  Receive Date: 20120626
  Receipt Date: 20120620
  Transmission Date: 20120825
  Serious: Yes (Other)
  Sender: FDA-Public Use
  Company Number: PHEH2011US07946

PATIENT
  Sex: Male

DRUGS (18)
  1. PROZAC [Concomitant]
  2. TERAZOSIN HCL [Concomitant]
  3. SANDOSTATIN LAR [Suspect]
     Dosage: 20 MG, QW2
     Dates: start: 20020101
  4. GLIPIZIDE [Concomitant]
  5. THYROID TAB [Concomitant]
  6. DIOVAN [Concomitant]
  7. NORCO [Concomitant]
  8. SANDOSTATIN LAR [Suspect]
  9. NEXIUM [Concomitant]
  10. METOPROLOL TARTRATE [Concomitant]
  11. LIPITOR [Concomitant]
  12. SANDOSTATIN LAR [Suspect]
     Dosage: 10 MG, UNK
  13. LANTUS [Concomitant]
  14. ATORVASTATIN [Concomitant]
  15. SANDOSTATIN LAR [Suspect]
     Dosage: 30 MG, EVERY 3 WEEKS
  16. LYRICA [Concomitant]
  17. SANDOSTATIN LAR [Suspect]
     Dosage: 30 MG, QW3
  18. CLOBETASOL PROPIONATE [Concomitant]

REACTIONS (9)
  - NEOPLASM PROGRESSION [None]
  - NEEDLE ISSUE [None]
  - DIABETES MELLITUS [None]
  - HEPATIC NEOPLASM MALIGNANT [None]
  - FALL [None]
  - BACK INJURY [None]
  - UNDERDOSE [None]
  - CARDIAC DISORDER [None]
  - TERMINAL STATE [None]
